FAERS Safety Report 9914079 (Version 2)
Quarter: 2014Q1

REPORT INFORMATION
  Report Type: Spontaneous
  Country: US (occurrence: US)
  Receive Date: 20140220
  Receipt Date: 20140220
  Transmission Date: 20141002
  Serious: No
  Sender: FDA-Public Use
  Company Number: US-MYLANLABS-2013S1005869

PATIENT
  Age: 62 Year
  Sex: Female
  Weight: 72.58 kg

DRUGS (10)
  1. ALPRAZOLAM TABLETS, USP [Suspect]
     Indication: ANXIETY
     Route: 048
     Dates: start: 201207, end: 201301
  2. ALPRAZOLAM TABLETS, USP [Suspect]
     Indication: PANIC ATTACK
     Route: 048
     Dates: start: 201207, end: 201301
  3. ALPRAZOLAM TABLETS, USP [Suspect]
     Indication: ANXIETY
     Route: 048
     Dates: start: 201301, end: 201303
  4. ALPRAZOLAM TABLETS, USP [Suspect]
     Indication: PANIC ATTACK
     Route: 048
     Dates: start: 201301, end: 201303
  5. ALPRAZOLAM TABLETS, USP [Suspect]
     Indication: ANXIETY
     Route: 048
     Dates: start: 201301, end: 201303
  6. ALPRAZOLAM TABLETS, USP [Suspect]
     Indication: PANIC ATTACK
     Route: 048
     Dates: start: 201301, end: 201303
  7. CORTISONE [Concomitant]
  8. ASPIRIN [Concomitant]
     Indication: PAIN
  9. ANTI-ASTHMATICS [Concomitant]
     Indication: ASTHMA
     Dosage: UNKNOWN INHALER
     Route: 055
  10. FISH OIL [Concomitant]

REACTIONS (16)
  - Chest pain [Recovered/Resolved]
  - Tachycardia [Recovered/Resolved]
  - Palpitations [Recovered/Resolved]
  - Tinnitus [Recovered/Resolved]
  - Ear pain [Recovered/Resolved]
  - Cystitis [Recovered/Resolved]
  - Drug withdrawal syndrome [Recovered/Resolved]
  - Arthralgia [Recovered/Resolved]
  - Hypoaesthesia [Recovered/Resolved]
  - Tremor [Recovered/Resolved]
  - Joint stiffness [Recovered/Resolved]
  - Dysgraphia [Recovered/Resolved]
  - Dizziness [Recovered/Resolved]
  - Memory impairment [Recovered/Resolved]
  - Rhinorrhoea [Recovered/Resolved]
  - Dysuria [Recovered/Resolved]
